FAERS Safety Report 5981416-9 (Version None)
Quarter: 2008Q4

REPORT INFORMATION
  Report Type: 
  Country: None (occurrence: None)
  Receive Date: 20081205
  Receipt Date: 20081125
  Transmission Date: 20090506
  Serious: Yes (Hospitalization)
  Sender: FDA-Public Use
  Company Number: DE-WYE-H07001108

PATIENT
  Sex: Female

DRUGS (3)
  1. PANTOZOL [Suspect]
     Indication: HELICOBACTER INFECTION
     Route: 048
  2. CLARITHROMYCIN [Suspect]
     Indication: HELICOBACTER INFECTION
     Route: 048
  3. AMOXICILLIN [Suspect]
     Indication: HELICOBACTER INFECTION
     Route: 048

REACTIONS (2)
  - DIARRHOEA [None]
  - GASTROENTERITIS NOROVIRUS [None]
